FAERS Safety Report 4761414-3 (Version None)
Quarter: 2005Q3

REPORT INFORMATION
  Report Type: 
  Country: None (occurrence: None)
  Receive Date: 20050901
  Receipt Date: 20050819
  Transmission Date: 20060218
  Serious: Yes (Death)
  Sender: FDA-Public Use
  Company Number: 2005117149

PATIENT
  Age: 78 Year
  Sex: Male

DRUGS (6)
  1. SULPERAZON (SULBACTAM, CEFOPERAZONE) [Suspect]
     Indication: LUNG INFECTION
     Dosage: 4 GRAM (2 GRAM, BID INTERVAL: EVERYDAY), INTRAVENOUS; 2 GRAM (2 GRAM, DAILY), INTRAVENOUS; 6 GRAM (2
     Route: 042
     Dates: start: 20050811, end: 20050813
  2. SULPERAZON (SULBACTAM, CEFOPERAZONE) [Suspect]
     Indication: LUNG INFECTION
     Dosage: 4 GRAM (2 GRAM, BID INTERVAL: EVERYDAY), INTRAVENOUS; 2 GRAM (2 GRAM, DAILY), INTRAVENOUS; 6 GRAM (2
     Route: 042
     Dates: start: 20050814, end: 20050814
  3. SULPERAZON (SULBACTAM, CEFOPERAZONE) [Suspect]
     Indication: LUNG INFECTION
     Dosage: 4 GRAM (2 GRAM, BID INTERVAL: EVERYDAY), INTRAVENOUS; 2 GRAM (2 GRAM, DAILY), INTRAVENOUS; 6 GRAM (2
     Route: 042
     Dates: start: 20050816, end: 20050816
  4. MAXIPIME [Concomitant]
  5. AMINOPHYLLIN [Concomitant]
  6. FAT EMULSION (FATS NOS) [Concomitant]

REACTIONS (2)
  - CARDIOPULMONARY FAILURE [None]
  - PHARMACEUTICAL PRODUCT COMPLAINT [None]
